FAERS Safety Report 23712716 (Version 2)
Quarter: 2024Q2

REPORT INFORMATION
  Report Type: Report from Study
  Country: US (occurrence: US)
  Receive Date: 20240405
  Receipt Date: 20240410
  Transmission Date: 20240716
  Serious: Yes (Hospitalization)
  Sender: FDA-Public Use
  Company Number: US-Eisai-EC-2024-163162

PATIENT
  Age: 70 Year
  Sex: Female
  Weight: 94.8 kg

DRUGS (2)
  1. LENVIMA [Suspect]
     Active Substance: LENVATINIB
     Indication: Endometrial cancer
     Route: 048
     Dates: start: 20230323, end: 20230406
  2. LENVIMA [Suspect]
     Active Substance: LENVATINIB
     Dosage: ELSEWHERE REPORTED AS 10 MG ONCE DAILY
     Route: 048
     Dates: start: 20230417

REACTIONS (2)
  - Uterine prolapse [Not Recovered/Not Resolved]
  - Haemorrhage [Not Recovered/Not Resolved]

NARRATIVE: CASE EVENT DATE: 20240101
